FAERS Safety Report 23553520 (Version 2)
Quarter: 2024Q1

REPORT INFORMATION
  Report Type: Report from Study
  Country: US (occurrence: US)
  Receive Date: 20240222
  Receipt Date: 20240226
  Transmission Date: 20240410
  Serious: Yes (Other)
  Sender: FDA-Public Use
  Company Number: US-ABBVIE-5648732

PATIENT
  Sex: Female

DRUGS (1)
  1. BOTOX [Suspect]
     Active Substance: ONABOTULINUMTOXINA
     Indication: Urinary incontinence
     Dosage: TIME INTERVAL: AS NECESSARY: START DATE TEXT: 3 YEARS?FREQUENCY TEXT: UNKNOWN
     Route: 030

REACTIONS (2)
  - Skin cancer [Recovering/Resolving]
  - Squamous cell carcinoma of skin [Unknown]
